APPROVED DRUG PRODUCT: METHENAMINE HIPPURATE
Active Ingredient: METHENAMINE HIPPURATE
Strength: 1GM
Dosage Form/Route: TABLET;ORAL
Application: A210068 | Product #001 | TE Code: AB
Applicant: NOVAST LABORATORIES LTD
Approved: Nov 27, 2020 | RLD: No | RS: No | Type: RX